FAERS Safety Report 16188246 (Version 1)
Quarter: 2019Q2

REPORT INFORMATION
  Report Type: Spontaneous
  Country: ES (occurrence: ES)
  Receive Date: 20190412
  Receipt Date: 20190412
  Transmission Date: 20190711
  Serious: Yes (Death, Hospitalization)
  Sender: FDA-Public Use
  Company Number: ES-AXELLIA-002391

PATIENT
  Age: 92 Year
  Sex: Male

DRUGS (1)
  1. VANCOMYCIN [Suspect]
     Active Substance: VANCOMYCIN
     Indication: CORYNEBACTERIUM INFECTION
     Dosage: 1 GRAM EVERY 12 HOURS
     Route: 042
     Dates: start: 20190226, end: 20190306

REACTIONS (4)
  - Acute kidney injury [Fatal]
  - Condition aggravated [Fatal]
  - Therapeutic drug monitoring analysis not performed [Fatal]
  - Symmetrical drug-related intertriginous and flexural exanthema [Recovering/Resolving]

NARRATIVE: CASE EVENT DATE: 20190228
